FAERS Safety Report 7607773-5 (Version None)
Quarter: 2011Q3

REPORT INFORMATION
  Report Type: 
  Country: None (occurrence: None)
  Receive Date: 20110713
  Receipt Date: 20110620
  Transmission Date: 20111222
  Serious: Yes (Hospitalization)
  Sender: FDA-Public Use
  Company Number: PHHO2007US18711

PATIENT
  Sex: Male
  Weight: 74 kg

DRUGS (2)
  1. ZORTRESS [Suspect]
     Indication: HEART TRANSPLANT
     Dosage: 1.5 MG, BID
     Route: 048
     Dates: start: 20061024, end: 20080102
  2. NEORAL [Suspect]
     Indication: HEART TRANSPLANT
     Dosage: 50 MG, BID
     Route: 048
     Dates: start: 20061024

REACTIONS (14)
  - RHINORRHOEA [None]
  - COUGH [None]
  - PYREXIA [None]
  - DYSPNOEA EXERTIONAL [None]
  - CHILLS [None]
  - RESPIRATORY SYNCYTIAL VIRUS INFECTION [None]
  - GENERAL SYMPTOM [None]
  - DYSPNOEA [None]
  - INTERSTITIAL LUNG DISEASE [None]
  - PLEURITIC PAIN [None]
  - BRONCHITIS [None]
  - NAUSEA [None]
  - PNEUMONIA [None]
  - OROPHARYNGEAL PAIN [None]
